FAERS Safety Report 22215647 (Version 6)
Quarter: 2023Q2

REPORT INFORMATION
  Report Type: Report from Study
  Country: CA (occurrence: CA)
  Receive Date: 20230416
  Receipt Date: 20230626
  Transmission Date: 20230722
  Serious: Yes (Other)
  Sender: FDA-Public Use
  Company Number: CA-002147023-NVSC2023CA051121

PATIENT
  Age: 67 Year
  Sex: Female

DRUGS (3)
  1. HYRIMOZ [Suspect]
     Active Substance: ADALIMUMAB-ADAZ
     Indication: Colitis ulcerative
     Dosage: 40 MG
     Route: 058
     Dates: start: 20220405
  2. HYRIMOZ [Suspect]
     Active Substance: ADALIMUMAB-ADAZ
     Indication: Rheumatoid arthritis
     Dosage: 40 MG, QW
     Route: 058
  3. HYRIMOZ [Suspect]
     Active Substance: ADALIMUMAB-ADAZ
     Indication: Crohn^s disease

REACTIONS (7)
  - Deafness [Recovered/Resolved]
  - Colitis ulcerative [Recovering/Resolving]
  - Speech disorder [Recovering/Resolving]
  - Sinus congestion [Recovering/Resolving]
  - Laryngitis [Recovering/Resolving]
  - Cough [Unknown]
  - Therapeutic product effect decreased [Unknown]

NARRATIVE: CASE EVENT DATE: 20221201
